FAERS Safety Report 17298550 (Version 4)
Quarter: 2024Q3

REPORT INFORMATION
  Report Type: Spontaneous
  Country: JP (occurrence: JP)
  Receive Date: 20200121
  Receipt Date: 20240912
  Transmission Date: 20241017
  Serious: Yes (Hospitalization, Other)
  Sender: PFIZER
  Company Number: JP-MLMSERVICE-20200109-2116776-2

PATIENT
  Age: 27 Year
  Sex: Female

DRUGS (7)
  1. DOCETAXEL [Suspect]
     Active Substance: DOCETAXEL\DOCETAXEL ANHYDROUS
     Indication: Breast cancer female
     Dosage: UNK, CYCLIC (1 CYCLE), EVERY 3 WEEKS
  2. DOCETAXEL [Suspect]
     Active Substance: DOCETAXEL\DOCETAXEL ANHYDROUS
     Dosage: 106 MG, EVERY 3 WEEKS (106 MG, 75 MG/M2)
  3. EPIRUBICIN HYDROCHLORIDE [Suspect]
     Active Substance: EPIRUBICIN HYDROCHLORIDE
     Indication: Breast cancer female
     Dosage: UNK, 4 CYCLE (DOSE-DENSE), ADMINISTERED 2 MONTHS AFTER SURGERY
  4. EPIRUBICIN HYDROCHLORIDE [Suspect]
     Active Substance: EPIRUBICIN HYDROCHLORIDE
     Dosage: 126 MG, EVERY 3 WEEKS (126 MG, 90 MG/M2)
  5. CYCLOPHOSPHAMIDE [Suspect]
     Active Substance: CYCLOPHOSPHAMIDE
     Indication: Breast cancer female
     Dosage: UNK, 4 CYCLE, ADMINISTERED 2 MONTHS AFTER SURGERY
  6. CYCLOPHOSPHAMIDE [Suspect]
     Active Substance: CYCLOPHOSPHAMIDE
     Dosage: 840 MG, EVERY 3 WEEKS (840 MG, 600 MG/M2)
  7. PREDNISOLONE [Suspect]
     Active Substance: PREDNISOLONE
     Dosage: 17.4 MG, 1X/DAY

REACTIONS (1)
  - Pneumocystis jirovecii pneumonia [Recovering/Resolving]
